FAERS Safety Report 9961417 (Version 1)
Quarter: 2014Q1

REPORT INFORMATION
  Report Type: Spontaneous
  Country: CN (occurrence: HK)
  Receive Date: 20140305
  Receipt Date: 20140305
  Transmission Date: 20141002
  Serious: Yes (Other)
  Sender: FDA-Public Use
  Company Number: CN-JHP PHARMACEUTICALS, LLC-JHP201400063

PATIENT
  Age: 28 Year
  Sex: Female

DRUGS (1)
  1. KETALAR [Suspect]
     Indication: DRUG ABUSE
     Route: 065

REACTIONS (1)
  - Biliary tract disorder [Recovered/Resolved]
